APPROVED DRUG PRODUCT: AGGRASTAT
Active Ingredient: TIROFIBAN HYDROCHLORIDE
Strength: EQ 12.5MG BASE/50ML (EQ 0.25MG BASE/ML)
Dosage Form/Route: INJECTABLE;INJECTION
Application: N020912 | Product #001
Applicant: MEDICURE INTERNATIONAL INC
Approved: May 14, 1998 | RLD: No | RS: No | Type: DISCN